FAERS Safety Report 6304226-1 (Version None)
Quarter: 2009Q3

REPORT INFORMATION
  Report Type: 
  Country: None (occurrence: None)
  Receive Date: 20090811
  Receipt Date: 20090730
  Transmission Date: 20100115
  Serious: Yes (Other)
  Sender: FDA-Public Use
  Company Number: ES-JNJFOC-20090709805

PATIENT
  Age: 49 Year
  Sex: Male

DRUGS (1)
  1. REMICADE [Suspect]
     Indication: RHEUMATOID ARTHRITIS
     Route: 042

REACTIONS (5)
  - ANXIETY [None]
  - ERYTHEMA [None]
  - NAUSEA [None]
  - NERVOUSNESS [None]
  - PRURITUS [None]
